FAERS Safety Report 24633720 (Version 1)
Quarter: 2024Q4

REPORT INFORMATION
  Report Type: Spontaneous
  Country: US (occurrence: US)
  Receive Date: 20241118
  Receipt Date: 20241118
  Transmission Date: 20250114
  Serious: No
  Sender: BAUSCH AND LOMB
  Company Number: US-BAUSCHBL-2024BNL037420

PATIENT
  Age: 61 Year
  Sex: Female

DRUGS (2)
  1. XIIDRA [Suspect]
     Active Substance: LIFITEGRAST
     Indication: Dry eye
     Route: 047
     Dates: start: 20241104, end: 202411
  2. MOMETASONE FUROATE [Suspect]
     Active Substance: MOMETASONE FUROATE
     Indication: Nasal congestion
     Route: 045

REACTIONS (3)
  - Eye irritation [Unknown]
  - Dysgeusia [Not Recovered/Not Resolved]
  - Product after taste [Unknown]

NARRATIVE: CASE EVENT DATE: 20241101
